FAERS Safety Report 7309162-X (Version None)
Quarter: 2011Q1

REPORT INFORMATION
  Report Type: 
  Country: None (occurrence: None)
  Receive Date: 20110223
  Receipt Date: 20110211
  Transmission Date: 20110831
  Serious: Yes (Hospitalization)
  Sender: FDA-Public Use
  Company Number: FR-ELI_LILLY_AND_COMPANY-FR201102002959

PATIENT
  Sex: Male

DRUGS (2)
  1. CARBOPLATIN [Concomitant]
     Indication: HEPATIC NEOPLASM MALIGNANT
     Dosage: 735.36 MG, UNK
     Route: 042
     Dates: start: 20091110
  2. ALIMTA [Suspect]
     Indication: HEPATIC NEOPLASM MALIGNANT
     Dosage: UNK, UNK
     Route: 042
     Dates: start: 20091110

REACTIONS (4)
  - GENITAL ERYTHEMA [None]
  - PRURITUS GENITAL [None]
  - GENITAL ULCERATION [None]
  - URTICARIA [None]
